FAERS Safety Report 11431187 (Version 1)
Quarter: 2015Q3

REPORT INFORMATION
  Report Type: Spontaneous
  Country: US (occurrence: US)
  Receive Date: 20150828
  Receipt Date: 20150828
  Transmission Date: 20151125
  Serious: No
  Sender: FDA-Public Use
  Company Number: US-ASTRAZENECA-2015SE81903

PATIENT

DRUGS (4)
  1. BYETTA [Suspect]
     Active Substance: EXENATIDE
     Route: 065
  2. INSULIN [Concomitant]
     Active Substance: INSULIN NOS
     Dosage: 17 U - 24 U
  3. METFORMIN [Concomitant]
     Active Substance: METFORMIN HYDROCHLORIDE
  4. VICTOZA [Concomitant]
     Active Substance: LIRAGLUTIDE

REACTIONS (1)
  - Weight decreased [Unknown]
